FAERS Safety Report 6451980-4 (Version None)
Quarter: 2009Q4

REPORT INFORMATION
  Report Type: 
  Country: None (occurrence: None)
  Receive Date: 20091123
  Receipt Date: 20091023
  Transmission Date: 20100525
  Serious: No
  Sender: FDA-Public Use
  Company Number: US-BAYER-200916042BCC

PATIENT
  Sex: Female

DRUGS (3)
  1. ALEVE [Suspect]
     Indication: PAIN
     Route: 065
  2. ADVIL [Suspect]
     Indication: PAIN
  3. VICODIN [Concomitant]
     Indication: PAIN
     Route: 065

REACTIONS (1)
  - PAIN [None]
